FAERS Safety Report 14526323 (Version 2)
Quarter: 2018Q1

REPORT INFORMATION
  Report Type: Spontaneous
  Country: SI (occurrence: SI)
  Receive Date: 20180213
  Receipt Date: 20180314
  Transmission Date: 20180509
  Serious: Yes (Other)
  Sender: FDA-Public Use
  Company Number: SI-ABBVIE-18P-261-2231738-00

PATIENT
  Sex: Male

DRUGS (1)
  1. VENETOCLAX. [Suspect]
     Active Substance: VENETOCLAX
     Indication: CHRONIC LYMPHOCYTIC LEUKAEMIA
     Dosage: AS PER SCHEDULE
     Route: 048
     Dates: start: 20171222, end: 20180119

REACTIONS (3)
  - Neutropenia [Unknown]
  - Hepatitis B [Unknown]
  - Neutropenia [Unknown]

NARRATIVE: CASE EVENT DATE: 20180119
